FAERS Safety Report 5815989-3 (Version None)
Quarter: 2008Q3

REPORT INFORMATION
  Report Type: 
  Country: None (occurrence: None)
  Receive Date: 20080716
  Receipt Date: 20080716
  Transmission Date: 20090109
  Serious: Yes (Hospitalization, Other)
  Sender: FDA-Public Use
  Company Number: None

PATIENT
  Sex: Male
  Weight: 113.3993 kg

DRUGS (2)
  1. SEROQUEL [Suspect]
     Indication: ANXIETY
     Dosage: MAX. 400MG/DAY PO
     Route: 048
     Dates: start: 20040501, end: 20080715
  2. SEROQUEL [Suspect]
     Indication: IMPULSIVE BEHAVIOUR
     Dosage: MAX. 400MG/DAY PO
     Route: 048
     Dates: start: 20040501, end: 20080715

REACTIONS (6)
  - EATING DISORDER [None]
  - INCREASED INSULIN REQUIREMENT [None]
  - INSOMNIA [None]
  - LOSS OF EMPLOYMENT [None]
  - PSYCHOTIC DISORDER [None]
  - WEIGHT INCREASED [None]
